FAERS Safety Report 7700161-2 (Version None)
Quarter: 2011Q3

REPORT INFORMATION
  Report Type: 
  Country: None (occurrence: None)
  Receive Date: 20110822
  Receipt Date: 20110817
  Transmission Date: 20111222
  Serious: Yes (Disabling, Other)
  Sender: FDA-Public Use
  Company Number: US-PFIZER INC-2009253851

PATIENT
  Sex: Female
  Weight: 159 kg

DRUGS (4)
  1. DIGOXIN [Concomitant]
     Indication: CARDIAC DISORDER
     Dosage: UNK
     Dates: start: 19990101
  2. PROVERA [Suspect]
     Indication: HORMONE REPLACEMENT THERAPY
     Dosage: 10 MG, UNK
     Route: 048
     Dates: start: 19880601, end: 19990801
  3. LOVENOX [Concomitant]
     Indication: RIGHT VENTRICULAR FAILURE
     Dosage: 60 MG, 2X/DAY
     Dates: start: 19970101, end: 20090101
  4. LOVENOX [Concomitant]
     Indication: ANTICOAGULANT THERAPY

REACTIONS (1)
  - OVARIAN CANCER [None]
